FAERS Safety Report 9935825 (Version 1)
Quarter: 2014Q1

REPORT INFORMATION
  Report Type: Spontaneous
  Country: US (occurrence: US)
  Receive Date: 20140228
  Receipt Date: 20140228
  Transmission Date: 20141002
  Serious: No
  Sender: FDA-Public Use
  Company Number: US-AMGEN-USASP2013070010

PATIENT
  Age: 64 Year
  Sex: Female
  Weight: 61.22 kg

DRUGS (10)
  1. ENBREL [Suspect]
     Indication: PRODUCT USED FOR UNKNOWN INDICATION
     Dosage: 50 MG, QWK
     Route: 058
  2. SYNTHROID [Concomitant]
     Dosage: 100 MUG, UNK
  3. FLECAINIDE [Concomitant]
     Dosage: 50 MG, UNK
  4. METHOTREXATE [Concomitant]
     Dosage: 2.5 MG, UNK
  5. SIMVASTATIN [Concomitant]
     Dosage: 10 MG, UNK
  6. ESTRACE [Concomitant]
     Dosage: 2 MG, UNK
  7. AMBIEN [Concomitant]
     Dosage: 5 MG, UNK
  8. FOLIC ACID [Concomitant]
     Dosage: UNK
  9. CALCIUM MAGNESIUM + ZINC           /01320801/ [Concomitant]
     Dosage: UNK
  10. VITAMIN D                          /00107901/ [Concomitant]
     Dosage: 1000 UNIT, UNK

REACTIONS (4)
  - White blood cell count decreased [Unknown]
  - Cough [Unknown]
  - Impaired healing [Unknown]
  - Infection [Unknown]
